FAERS Safety Report 6783705-7 (Version None)
Quarter: 2010Q2

REPORT INFORMATION
  Report Type: 
  Country: None (occurrence: None)
  Receive Date: 20100622
  Receipt Date: 20100616
  Transmission Date: 20101027
  Serious: Yes (Other)
  Sender: FDA-Public Use
  Company Number: GR-ROCHE-709818

PATIENT
  Sex: Female

DRUGS (1)
  1. HERCEPTIN [Suspect]
     Indication: BREAST CANCER
     Dosage: DOSE: 3 TO 4 VIALS OF HERCEPTIN OF 150 MG EACH=450 OR 600 MG IN TOTAL (APPROXIMATELY), FORM: VIAL
     Route: 042
     Dates: start: 20081101, end: 20091112

REACTIONS (1)
  - BLOOD AMYLASE INCREASED [None]
